FAERS Safety Report 13342383 (Version 1)
Quarter: 2017Q1

REPORT INFORMATION
  Report Type: Spontaneous
  Country: US (occurrence: US)
  Receive Date: 20170316
  Receipt Date: 20170316
  Transmission Date: 20170428
  Serious: Yes (Other)
  Sender: FDA-Public Use
  Company Number: US-DEPOMED, INC.-US-2017DEP000542

PATIENT

DRUGS (5)
  1. NUCYNTA [Suspect]
     Active Substance: TAPENTADOL HYDROCHLORIDE
     Indication: ARTHRALGIA
     Dosage: 100 MG, QID
     Route: 048
     Dates: start: 2012, end: 2015
  2. NUCYNTA ER [Suspect]
     Active Substance: TAPENTADOL HYDROCHLORIDE
     Indication: NEURALGIA
  3. GLIPIZIDE. [Suspect]
     Active Substance: GLIPIZIDE
     Indication: DIABETES MELLITUS
     Dosage: UNK
     Route: 048
  4. NUCYNTA ER [Suspect]
     Active Substance: TAPENTADOL HYDROCHLORIDE
     Indication: RHEUMATOID ARTHRITIS
     Dosage: 250 MG, QD AT NIGHT
     Route: 048
     Dates: start: 2015
  5. NUCYNTA [Suspect]
     Active Substance: TAPENTADOL HYDROCHLORIDE
     Indication: NEURALGIA
     Dosage: 100 MG, TID
     Route: 048
     Dates: start: 2015

REACTIONS (3)
  - Medication error [Unknown]
  - Hypoglycaemic coma [Recovered/Resolved]
  - Drug resistance [Recovered/Resolved]

NARRATIVE: CASE EVENT DATE: 2015
